FAERS Safety Report 10443276 (Version 1)
Quarter: 2014Q3

REPORT INFORMATION
  Report Type: Spontaneous
  Country: FR (occurrence: FR)
  Receive Date: 20140910
  Receipt Date: 20140910
  Transmission Date: 20150326
  Serious: Yes (Hospitalization)
  Sender: FDA-Public Use
  Company Number: FR-PFIZER INC-2014246910

PATIENT
  Age: 40 Year
  Sex: Female

DRUGS (5)
  1. LYRICA [Suspect]
     Active Substance: PREGABALIN
     Dosage: 50 MG, 2X/DAY
     Route: 048
     Dates: start: 20140729
  2. TRAMADOL DCI PHARMA [Suspect]
     Active Substance: TRAMADOL
     Dosage: 100 MG, 2X/DAY
     Route: 048
     Dates: start: 20140729
  3. INEXIUM [Suspect]
     Active Substance: ESOMEPRAZOLE
     Dosage: 20 MG, 1X/DAY
     Route: 048
     Dates: start: 20140729
  4. BIPROFENID LP [Suspect]
     Active Substance: KETOPROFEN
     Dosage: 100 MG, 2X/DAY
     Route: 048
     Dates: start: 20140729
  5. LECTIL [Suspect]
     Active Substance: BETAHISTINE HYDROCHLORIDE
     Dosage: 48 MG, 1X/DAY
     Route: 048
     Dates: start: 20140729

REACTIONS (5)
  - Sensorimotor disorder [Unknown]
  - Motor dysfunction [Unknown]
  - Chest discomfort [Unknown]
  - Peripheral coldness [Unknown]
  - Chest pain [None]

NARRATIVE: CASE EVENT DATE: 20140730
